FAERS Safety Report 21968743 (Version 1)
Quarter: 2023Q1

REPORT INFORMATION
  Report Type: Spontaneous
  Country: US (occurrence: US)
  Receive Date: 20230208
  Receipt Date: 20230208
  Transmission Date: 20230418
  Serious: Yes (Hospitalization, Other)
  Sender: FDA-Public Use
  Company Number: US-TAKEDA-2023TUS012749

PATIENT
  Sex: Male
  Weight: 118 kg

DRUGS (1)
  1. GAMMAGARD LIQUID [Suspect]
     Active Substance: HUMAN IMMUNOGLOBULIN G
     Indication: West Nile viral infection
     Dosage: UNK
     Route: 065

REACTIONS (10)
  - Hiccups [Unknown]
  - Dysstasia [Unknown]
  - Diplopia [Unknown]
  - Brain oedema [Unknown]
  - Encephalitis [Unknown]
  - Meningitis [Unknown]
  - Transient ischaemic attack [Unknown]
  - Malaise [Unknown]
  - Insomnia [Unknown]
  - Off label use [Unknown]
